FAERS Safety Report 4437420-5 (Version None)
Quarter: 2004Q3

REPORT INFORMATION
  Report Type: 
  Country: None (occurrence: None)
  Receive Date: 20040830
  Receipt Date: 20040830
  Transmission Date: 20050211
  Serious: Yes (Hospitalization)
  Sender: FDA-Public Use
  Company Number: None

PATIENT
  Age: 56 Year
  Sex: Male

DRUGS (5)
  1. MORPHINE SULFATE [Suspect]
     Dosage: 10 MG Q 4 PRN
  2. ATENOLOL [Concomitant]
  3. GABAPENTIN [Concomitant]
  4. ALBUTEROL [Concomitant]
  5. SERTRALINE HCL [Concomitant]

REACTIONS (3)
  - NAUSEA [None]
  - VENTRICULAR TACHYCARDIA [None]
  - VOMITING [None]
